FAERS Safety Report 5908158-X (Version None)
Quarter: 2008Q4

REPORT INFORMATION
  Report Type: 
  Country: None (occurrence: None)
  Receive Date: 20081003
  Receipt Date: 20080925
  Transmission Date: 20090506
  Serious: Yes (Other)
  Sender: FDA-Public Use
  Company Number: US-PFIZER INC-2008074670

PATIENT
  Sex: Male
  Weight: 95.454 kg

DRUGS (12)
  1. CADUET [Suspect]
     Indication: HYPERTENSION
     Dosage: TEXT:5MG/20MG
     Dates: start: 20070101
  2. CADUET [Suspect]
     Indication: BLOOD CHOLESTEROL INCREASED
  3. LIPITOR [Suspect]
     Indication: BLOOD CHOLESTEROL INCREASED
  4. ATENOLOL [Concomitant]
  5. AVAPRO [Concomitant]
  6. METFORMIN HCL [Concomitant]
     Indication: DIABETES MELLITUS
  7. GLIMEPIRIDE [Concomitant]
     Indication: DIABETES MELLITUS
  8. PROTONIX [Concomitant]
     Indication: GASTROINTESTINAL DISORDER
  9. ACETYLSALICYLIC ACID SRT [Concomitant]
  10. SPIRONOLACTONE [Concomitant]
  11. WARFARIN SODIUM [Concomitant]
  12. ALPRAZOLAM [Concomitant]

REACTIONS (5)
  - DISCOMFORT [None]
  - FATIGUE [None]
  - PAIN [None]
  - STENT PLACEMENT [None]
  - WRONG TECHNIQUE IN DRUG USAGE PROCESS [None]
